FAERS Safety Report 22168615 (Version 1)
Quarter: 2023Q2

REPORT INFORMATION
  Report Type: Spontaneous
  Country: CN (occurrence: CN)
  Receive Date: 20230403
  Receipt Date: 20230403
  Transmission Date: 20230721
  Serious: Yes (Life-Threatening, Other)
  Sender: FDA-Public Use
  Company Number: CN-002147023-NVSC2023CN076182

PATIENT
  Age: 59 Year
  Sex: Female
  Weight: 43 kg

DRUGS (1)
  1. ZOLEDRONIC ACID [Suspect]
     Active Substance: ZOLEDRONIC ACID
     Indication: Osteoporosis
     Dosage: 5 MG, Q12MO
     Route: 041
     Dates: start: 20230324, end: 20230324

REACTIONS (16)
  - Cardiac discomfort [Recovering/Resolving]
  - Thyrotoxic crisis [Recovering/Resolving]
  - Tachypnoea [Recovering/Resolving]
  - Hyperpyrexia [Recovering/Resolving]
  - Heart rate increased [Recovering/Resolving]
  - Atrial fibrillation [Unknown]
  - Discomfort [Unknown]
  - Gastrooesophageal reflux disease [Unknown]
  - Electrocardiogram ST segment abnormal [Unknown]
  - Sinus tachycardia [Unknown]
  - Blood pressure decreased [Unknown]
  - Dyspepsia [Unknown]
  - Musculoskeletal chest pain [Unknown]
  - Dyspnoea [Unknown]
  - Pain [Unknown]
  - Hyperhidrosis [Unknown]

NARRATIVE: CASE EVENT DATE: 20230325
